FAERS Safety Report 9106028 (Version 1)
Quarter: 2013Q1

REPORT INFORMATION
  Report Type: Spontaneous
  Country: US (occurrence: US)
  Receive Date: 20130220
  Receipt Date: 20130220
  Transmission Date: 20140127
  Serious: Yes (Other)
  Sender: FDA-Public Use
  Company Number: US-PFIZER INC-2013062060

PATIENT
  Sex: 0

DRUGS (1)
  1. LYRICA [Suspect]
     Dosage: UNK, 1X/DAY

REACTIONS (6)
  - Mental impairment [Unknown]
  - Paranoia [Unknown]
  - Anger [Unknown]
  - Confusional state [Unknown]
  - Memory impairment [Unknown]
  - Irritability [Unknown]
